FAERS Safety Report 25928598 (Version 1)
Quarter: 2025Q4

REPORT INFORMATION
  Report Type: Spontaneous
  Country: US (occurrence: US)
  Receive Date: 20251016
  Receipt Date: 20251016
  Transmission Date: 20260118
  Serious: Yes (Other)
  Sender: AMGEN
  Company Number: US-AMGEN-USASP2025201467

PATIENT
  Age: 52 Year
  Sex: Female

DRUGS (7)
  1. PREDNISONE [Suspect]
     Active Substance: PREDNISONE
     Indication: Granulomatosis with polyangiitis
     Dosage: 50 MILLIGRAM, (TAPERING OVER 2 WEEKS)
     Route: 065
  2. PREDNISONE [Suspect]
     Active Substance: PREDNISONE
     Dosage: 60 MILLIGRAM, QD, (HIGH-DOSE)
     Route: 065
  3. RITUXIMAB [Suspect]
     Active Substance: RITUXIMAB
     Indication: Granulomatosis with polyangiitis
     Dosage: 375 MILLIGRAM/KILOGRAM, QD, (FOR 4 WEEKS)
     Route: 065
  4. RITUXIMAB [Suspect]
     Active Substance: RITUXIMAB
     Dosage: 1000 MILLIGRAM, Q4MO, (MAINTENANCE)
     Route: 065
  5. CLINDAMYCIN [Concomitant]
     Active Substance: CLINDAMYCIN
  6. ACYCLOVIR [Concomitant]
     Active Substance: ACYCLOVIR
  7. ERYTHROMYCIN [Concomitant]
     Active Substance: ERYTHROMYCIN

REACTIONS (9)
  - Deafness neurosensory [Unknown]
  - Facial paralysis [Unknown]
  - Granulomatosis with polyangiitis [Unknown]
  - Aural polyp [Unknown]
  - Otorrhoea [Unknown]
  - Drug ineffective for unapproved indication [Unknown]
  - Hypoacusis [Unknown]
  - Drug effective for unapproved indication [Unknown]
  - Off label use [Unknown]
